FAERS Safety Report 14112892 (Version 2)
Quarter: 2017Q4

REPORT INFORMATION
  Report Type: Spontaneous
  Country: PT (occurrence: PT)
  Receive Date: 20171022
  Receipt Date: 20171130
  Transmission Date: 20180321
  Serious: Yes (Other)
  Sender: FDA-Public Use
  Company Number: PT-ALSI-201700382

PATIENT
  Sex: Male

DRUGS (1)
  1. OXIG?NIO MEDICINAL AIR LIQUIDE MEDICINAL 100% G?S MEDICINAL [Suspect]
     Active Substance: OXYGEN
     Indication: PRODUCT USED FOR UNKNOWN INDICATION
     Route: 055

REACTIONS (2)
  - Intentional product misuse [Unknown]
  - Thermal burn [Unknown]
